FAERS Safety Report 19139459 (Version 4)
Quarter: 2021Q3

REPORT INFORMATION
  Report Type: Spontaneous
  Country: BR (occurrence: BR)
  Receive Date: 20210415
  Receipt Date: 20210906
  Transmission Date: 20211014
  Serious: Yes (Other)
  Sender: FDA-Public Use
  Company Number: BR-GLAXOSMITHKLINE-BR2021AMR078961

PATIENT
  Sex: Female
  Weight: 67 kg

DRUGS (3)
  1. FORASEQ [Concomitant]
     Active Substance: BUDESONIDE\FORMOTEROL FUMARATE
     Indication: PRODUCT USED FOR UNKNOWN INDICATION
     Dosage: UNK
  2. AEROLIN [Concomitant]
     Active Substance: ALBUTEROL
     Indication: PRODUCT USED FOR UNKNOWN INDICATION
     Dosage: UNK
  3. NUCALA [Suspect]
     Active Substance: MEPOLIZUMAB
     Indication: ASTHMA
     Dosage: 100 MG
     Dates: start: 20210115

REACTIONS (8)
  - Nervousness [Unknown]
  - Anxiety [Unknown]
  - Dyspnoea [Recovering/Resolving]
  - Product dose omission issue [Not Recovered/Not Resolved]
  - Asthmatic crisis [Recovering/Resolving]
  - Cough [Recovering/Resolving]
  - Asthma [Unknown]
  - Inappropriate schedule of product administration [Unknown]
